FAERS Safety Report 6044057-3 (Version None)
Quarter: 2009Q1

REPORT INFORMATION
  Report Type: 
  Country: None (occurrence: None)
  Receive Date: 20090115
  Receipt Date: 20090115
  Transmission Date: 20090719
  Serious: Yes (Hospitalization)
  Sender: FDA-Public Use
  Company Number: None

PATIENT
  Age: 49 Year
  Sex: Male

DRUGS (6)
  1. DIOVAN HCT [Suspect]
     Indication: HYPERTENSION
     Dosage: ONE TABLET DAILY PO
     Route: 048
  2. LEVOTHYROXINE [Concomitant]
  3. LISINOPRIL [Concomitant]
  4. PROTNIX [Concomitant]
  5. NORVASC [Concomitant]
  6. ASPIRIN [Concomitant]

REACTIONS (7)
  - ALCOHOL USE [None]
  - ANAEMIA [None]
  - BRONCHOSCOPY ABNORMAL [None]
  - CONVULSION [None]
  - DIARRHOEA [None]
  - HYPONATRAEMIA [None]
  - VOMITING [None]
